FAERS Safety Report 13691665 (Version 22)
Quarter: 2019Q2

REPORT INFORMATION
  Report Type: Report from Study
  Country: US (occurrence: US)
  Receive Date: 20170626
  Receipt Date: 20190502
  Transmission Date: 20190711
  Serious: Yes (Death, Hospitalization, Other)
  Sender: FDA-Public Use
  Company Number: US-ACTELION-A-US2016-133859

PATIENT
  Age: 32 Year
  Sex: Female
  Weight: 78.46 kg

DRUGS (6)
  1. VELETRI [Suspect]
     Active Substance: EPOPROSTENOL
     Indication: PULMONARY ARTERIAL HYPERTENSION
     Dosage: 31.24 NG/KG, PER MIN
     Route: 042
  2. VELETRI [Suspect]
     Active Substance: EPOPROSTENOL
     Dosage: 39.97 NG/KG, PER MIN
     Route: 042
  3. VELETRI [Suspect]
     Active Substance: EPOPROSTENOL
     Dosage: 20.2 NG/KG, PER MIN
     Route: 042
  4. LETAIRIS [Suspect]
     Active Substance: AMBRISENTAN
     Indication: PULMONARY ARTERIAL HYPERTENSION
     Dosage: 10 MG, QD
     Route: 065
  5. VELETRI [Suspect]
     Active Substance: EPOPROSTENOL
     Dosage: 11.48 NG/KG, PER MIN
     Route: 042
     Dates: start: 20160309
  6. ADEMPAS [Suspect]
     Active Substance: RIOCIGUAT
     Indication: PRODUCT USED FOR UNKNOWN INDICATION
     Dosage: 2.5 MG, TID
     Route: 065

REACTIONS (50)
  - Headache [Recovered/Resolved]
  - Fluid retention [Not Recovered/Not Resolved]
  - Decreased appetite [Unknown]
  - Ocular hyperaemia [Unknown]
  - Gastrointestinal disorder [Recovered/Resolved]
  - Anxiety [Not Recovered/Not Resolved]
  - Cholecystectomy [Unknown]
  - Cardiac flutter [Unknown]
  - Nausea [Unknown]
  - Paraesthesia [Recovered/Resolved]
  - Constipation [Unknown]
  - Heart rate increased [Unknown]
  - Dizziness [Not Recovered/Not Resolved]
  - Feeling abnormal [Recovered/Resolved]
  - Product preparation issue [Unknown]
  - Food poisoning [Not Recovered/Not Resolved]
  - Migraine [Unknown]
  - Vomiting [Unknown]
  - Dyspepsia [Unknown]
  - Drug dose titration not performed [Unknown]
  - Pulmonary hypertension [Unknown]
  - Skin exfoliation [Unknown]
  - Dysphonia [Unknown]
  - Fluid overload [Unknown]
  - Supraventricular tachycardia [Unknown]
  - Palpitations [Unknown]
  - Pain in jaw [Unknown]
  - Malaise [Unknown]
  - Cough [Recovered/Resolved]
  - Cardiovascular disorder [Recovered/Resolved]
  - Nasopharyngitis [Not Recovered/Not Resolved]
  - Eye discharge [Unknown]
  - Liver disorder [Unknown]
  - Ascites [Unknown]
  - Balance disorder [Unknown]
  - Feeling cold [Recovered/Resolved]
  - Hypotension [Unknown]
  - Abdominal pain upper [Unknown]
  - Hypoacusis [Unknown]
  - Eating disorder [Recovered/Resolved]
  - Blood potassium decreased [Not Recovered/Not Resolved]
  - Death [Fatal]
  - Renal disorder [Unknown]
  - Chest pain [Unknown]
  - Vertigo [Unknown]
  - Muscular weakness [Recovered/Resolved]
  - Dyspnoea [Unknown]
  - Thyroid disorder [Unknown]
  - Skin irritation [Unknown]
  - Diarrhoea [Unknown]

NARRATIVE: CASE EVENT DATE: 20170621
